FAERS Safety Report 9677559 (Version 2)
Quarter: 2014Q1

REPORT INFORMATION
  Report Type: Spontaneous
  Country: GB (occurrence: GB)
  Receive Date: 20131108
  Receipt Date: 20140207
  Transmission Date: 20141002
  Serious: Yes (Other)
  Sender: FDA-Public Use
  Company Number: GB-PERRIGO-13GB011331

PATIENT
  Sex: 0

DRUGS (11)
  1. IBUPROFEN 16028/0027 200 MG [Suspect]
     Indication: PAIN IN EXTREMITY
     Dosage: 400 MG, UNK
     Route: 048
     Dates: end: 20131029
  2. CITALOPRAM [Suspect]
     Indication: DEPRESSION
     Dosage: 10 MG,  UNK
     Route: 065
  3. DIAZEPAM [Concomitant]
     Indication: ANXIETY
     Dosage: UNK
     Route: 065
  4. PARACETAMOL [Concomitant]
     Indication: PRODUCT USED FOR UNKNOWN INDICATION
     Dosage: UNK
     Route: 065
  5. TEMAZEPAM [Concomitant]
     Indication: ANXIETY
     Dosage: UNK
     Route: 065
  6. IBUPROFEN 16028/0120 200 MG [Suspect]
     Indication: PAIN IN EXTREMITY
     Route: 048
     Dates: end: 20131029
  7. CITALOPRAM 40 MG/ML PL00427/0141 [Suspect]
     Indication: DEPRESSION
     Dosage: PATIENT IS STILL TAKING CITALOPRAM.
  8. QVAR [Concomitant]
     Indication: ASTHMA
  9. SALAMOL [Concomitant]
     Indication: ASTHMA
  10. SEREVENT [Concomitant]
     Indication: ASTHMA
  11. FEMSEVEN [Concomitant]
     Indication: HORMONE REPLACEMENT THERAPY

REACTIONS (2)
  - Rectal haemorrhage [Recovered/Resolved]
  - Drug interaction [Unknown]
